FAERS Safety Report 4384265-0 (Version None)
Quarter: 2004Q2

REPORT INFORMATION
  Report Type: 
  Country: None (occurrence: None)
  Receive Date: 20040621
  Receipt Date: 20040603
  Transmission Date: 20050107
  Serious: Yes (Hospitalization)
  Sender: FDA-Public Use
  Company Number: 194337

PATIENT
  Age: 54 Year
  Sex: Female

DRUGS (3)
  1. AVONEX [Suspect]
     Indication: MULTIPLE SCLEROSIS
     Dosage: 30 MCG QW IM
     Route: 030
  2. PAXIL [Concomitant]
  3. DILANTIN [Concomitant]

REACTIONS (4)
  - FAECAL INCONTINENCE [None]
  - MULTIPLE SCLEROSIS RELAPSE [None]
  - MYELITIS TRANSVERSE [None]
  - URINARY INCONTINENCE [None]
